FAERS Safety Report 9066866 (Version 3)
Quarter: 2013Q4

REPORT INFORMATION
  Report Type: Spontaneous
  Country: US (occurrence: US)
  Receive Date: 20130214
  Receipt Date: 20131106
  Transmission Date: 20140711
  Serious: Yes (Other)
  Sender: FDA-Public Use
  Company Number: US-PFIZER INC-2013053414

PATIENT
  Sex: Male

DRUGS (4)
  1. ELELYSO [Suspect]
     Dosage: UNK
     Route: 042
  2. ELELYSO [Suspect]
     Dosage: 7200 UNITS (280ML)
     Route: 042
     Dates: start: 20130105, end: 20130105
  3. BENADRYL [Suspect]
     Dosage: 50 MG, UNK
     Route: 042
  4. BENADRYL [Suspect]
     Dosage: UNK
     Route: 048

REACTIONS (4)
  - Chest pain [Recovered/Resolved]
  - Hypertension [Recovered/Resolved]
  - Infusion related reaction [Recovered/Resolved]
  - Hypersensitivity [Recovered/Resolved]
